FAERS Safety Report 13870373 (Version 1)
Quarter: 2017Q3

REPORT INFORMATION
  Report Type: Spontaneous
  Country: US (occurrence: US)
  Receive Date: 20170815
  Receipt Date: 20170815
  Transmission Date: 20171127
  Serious: No
  Sender: FDA-Public Use
  Company Number: US-LUNDBECK-DKLU2028281

PATIENT
  Age: 18 Year
  Sex: Female

DRUGS (3)
  1. NORTHERA [Suspect]
     Active Substance: DROXIDOPA
     Route: 065
  2. NORTHERA [Suspect]
     Active Substance: DROXIDOPA
     Indication: POSTURAL ORTHOSTATIC TACHYCARDIA SYNDROME
     Dosage: TITRATION SCHEDULE C
     Route: 065
     Dates: start: 20170307
  3. NORTHERA [Suspect]
     Active Substance: DROXIDOPA
     Route: 065

REACTIONS (5)
  - Oedema peripheral [Unknown]
  - Headache [Unknown]
  - Heart rate increased [Unknown]
  - Hypotension [Unknown]
  - Head discomfort [Unknown]

NARRATIVE: CASE EVENT DATE: 20170320
